FAERS Safety Report 23853465 (Version 1)
Quarter: 2024Q2

REPORT INFORMATION
  Report Type: Spontaneous
  Country: TH (occurrence: TH)
  Receive Date: 20240514
  Receipt Date: 20240514
  Transmission Date: 20240716
  Serious: Yes (Other)
  Sender: FDA-Public Use
  Company Number: TH-STERISCIENCE B.V.-2024-ST-000612

PATIENT

DRUGS (3)
  1. KETOROLAC [Suspect]
     Active Substance: KETOROLAC TROMETHAMINE
     Indication: Pain management
     Dosage: 15MG PREOPERATIVELY AND EVERY 6HOURS UNTIL 48HOURS
     Route: 065
  2. KETOROLAC [Suspect]
     Active Substance: KETOROLAC TROMETHAMINE
     Dosage: UNTIL 48 HOURS POSTOPERATIVELY
     Route: 065
  3. Aspirin? [Concomitant]
     Indication: Prophylaxis
     Dosage: 162MG FOR 14 DAYS
     Route: 065

REACTIONS (1)
  - Deep vein thrombosis [Unknown]
